FAERS Safety Report 17114389 (Version 7)
Quarter: 2023Q4

REPORT INFORMATION
  Report Type: Spontaneous
  Country: FR (occurrence: FR)
  Receive Date: 20191205
  Receipt Date: 20231127
  Transmission Date: 20240110
  Serious: Yes (Hospitalization, Other)
  Sender: FDA-Public Use
  Company Number: None

PATIENT
  Age: 28 Year
  Sex: Male

DRUGS (11)
  1. DUPIXENT [Suspect]
     Active Substance: DUPILUMAB
     Indication: Dermatitis atopic
     Dosage: 600 MG, QM
     Route: 058
     Dates: start: 2018, end: 201904
  2. PAROXETINE [Concomitant]
     Active Substance: PAROXETINE
     Indication: Mixed anxiety and depressive disorder
     Dosage: 20 MG, QD, IN MORNING
  3. CROMOFREE [Concomitant]
     Indication: Conjunctivitis allergic
     Dosage: UNK UNK, QD, AT NOON
  4. ATARAX [Concomitant]
     Active Substance: HYDROXYZINE HYDROCHLORIDE
     Indication: Dermatitis atopic
     Dosage: UNK
  5. CETIRIZINE [Concomitant]
     Active Substance: CETIRIZINE HYDROCHLORIDE
     Dosage: UNK
  6. GALION [Concomitant]
     Dosage: FRESH COLD CREAM
  7. SYNDETTE [Concomitant]
     Dosage: UNK
  8. ALMOND OIL\WHITE WAX [Concomitant]
     Active Substance: ALMOND OIL\WHITE WAX
     Dosage: 1 TO 2 TIMES/DAY
  9. ALMOND OIL\WHITE WAX [Concomitant]
     Active Substance: ALMOND OIL\WHITE WAX
     Dosage: 10% UREA
  10. LORATADINE [Concomitant]
     Active Substance: LORATADINE
     Indication: Allergy to animal
     Dosage: UNK
  11. TRIMEPRAZINE [Concomitant]
     Active Substance: TRIMEPRAZINE
     Dosage: UNK

REACTIONS (15)
  - Pulmonary sarcoidosis [Recovered/Resolved]
  - Granuloma [Recovered/Resolved]
  - Lung infiltration [Recovered/Resolved]
  - Parotitis [Recovered/Resolved]
  - Parotid gland enlargement [Recovered/Resolved]
  - Hypergammaglobulinaemia [Recovered/Resolved]
  - Lymphopenia [Recovered/Resolved]
  - Neurosarcoidosis [Recovered/Resolved]
  - Encephalitis [Recovered/Resolved]
  - Photophobia [Recovered/Resolved]
  - Confusional state [Recovered/Resolved]
  - Headache [Recovered/Resolved]
  - Vomiting [Recovered/Resolved]
  - Meningitis [Recovered/Resolved]
  - Phonophobia [Recovered/Resolved]

NARRATIVE: CASE EVENT DATE: 20190101
